FAERS Safety Report 9462271 (Version 1)
Quarter: 2013Q3

REPORT INFORMATION
  Report Type: Spontaneous
  Country: FR (occurrence: FR)
  Receive Date: 20130816
  Receipt Date: 20130816
  Transmission Date: 20140515
  Serious: Yes (Hospitalization)
  Sender: FDA-Public Use
  Company Number: FR-GLAXOSMITHKLINE-B0915688A

PATIENT
  Age: 64 Year
  Sex: Female

DRUGS (1)
  1. SORIATANE [Suspect]
     Indication: PUSTULAR PSORIASIS
     Dosage: 25MG PER DAY
     Route: 048
     Dates: start: 20130307, end: 20130314

REACTIONS (1)
  - Cholestasis [Recovering/Resolving]
